FAERS Safety Report 21585075 (Version 1)
Quarter: 2022Q4

REPORT INFORMATION
  Report Type: Spontaneous
  Country: US (occurrence: US)
  Receive Date: 20221111
  Receipt Date: 20221111
  Transmission Date: 20230112
  Serious: Yes (Other)
  Sender: FDA-Public Use
  Company Number: US-NOVOPROD-893758

PATIENT
  Sex: Female

DRUGS (1)
  1. TRESIBA [Suspect]
     Active Substance: INSULIN DEGLUDEC
     Indication: Product used for unknown indication
     Dosage: 34 IU, QD  TAKES AT 7 PM
     Route: 058

REACTIONS (3)
  - Blood glucose decreased [Recovered/Resolved]
  - Blood glucose increased [Unknown]
  - Product dose omission issue [Unknown]
